FAERS Safety Report 9684655 (Version 2)
Quarter: 2013Q4

REPORT INFORMATION
  Report Type: Spontaneous
  Country: US (occurrence: None)
  Receive Date: 20131108
  Receipt Date: 20131115
  Transmission Date: 20140711
  Serious: Yes (Hospitalization, Other)
  Sender: FDA-Public Use
  Company Number: CA-ALSI-201300270

PATIENT
  Age: 72 Year
  Sex: Female

DRUGS (1)
  1. OXYGEN [Suspect]
     Indication: CARDIAC FAILURE CONGESTIVE
     Dosage: 61 ONCE A MINUTE RESPIRATORY
     Dates: start: 20130910

REACTIONS (2)
  - Thermal burn [None]
  - Intentional drug misuse [None]
